FAERS Safety Report 9839092 (Version 2)
Quarter: 2014Q1

REPORT INFORMATION
  Report Type: Report from Study
  Country: NL (occurrence: NL)
  Receive Date: 20140123
  Receipt Date: 20140123
  Transmission Date: 20141002
  Serious: Yes (Other)
  Sender: FDA-Public Use
  Company Number: PHHY2013NL137482

PATIENT
  Sex: Female

DRUGS (2)
  1. ACLASTA [Suspect]
     Indication: OSTEOPOROSIS
     Dosage: 5 MG, EVERY 52 WEEK
     Route: 042
     Dates: start: 20111222
  2. ACLASTA [Suspect]
     Dosage: 5 MG, EVERY 52 WEEK
     Route: 042
     Dates: start: 20121217

REACTIONS (2)
  - Breast cancer [Unknown]
  - Arthralgia [Unknown]
